FAERS Safety Report 8965446 (Version 1)
Quarter: 2012Q4

REPORT INFORMATION
  Report Type: 
  Country: GB (occurrence: GB)
  Receive Date: 20121213
  Receipt Date: 20121213
  Transmission Date: 20130627
  Serious: Yes (Life-Threatening)
  Sender: FDA-Public Use
  Company Number: GB-ROCHE-1168144

PATIENT
  Age: 53 Year

DRUGS (1)
  1. CLONAZEPAM [Suspect]
     Indication: PRODUCT USED FOR UNKNOWN INDICATION
     Route: 048
     Dates: start: 20121123

REACTIONS (6)
  - Depressed level of consciousness [Recovering/Resolving]
  - Rash [Recovering/Resolving]
  - Hypopnoea [Recovering/Resolving]
  - Hypersomnia [Recovering/Resolving]
  - Eye swelling [Recovering/Resolving]
  - Unresponsive to stimuli [Recovering/Resolving]
